FAERS Safety Report 16856604 (Version 2)
Quarter: 2019Q4

REPORT INFORMATION
  Report Type: Report from Study
  Country: US (occurrence: US)
  Receive Date: 20190926
  Receipt Date: 20191004
  Transmission Date: 20200122
  Serious: Yes (Other)
  Sender: FDA-Public Use
  Company Number: US-BAUSCH-BL-2019-054694

PATIENT
  Sex: Male

DRUGS (2)
  1. SILIQ [Suspect]
     Active Substance: BRODALUMAB
     Indication: PSORIASIS
     Dosage: START DATE: APPROXIMATELY 6 TO 12 MONTHS AGO, DOSAGE: ONCE WEEKLY AT WEEKS 0,1, AND 2
     Route: 058
  2. SILIQ [Suspect]
     Active Substance: BRODALUMAB
     Route: 058
     Dates: start: 201904, end: 201909

REACTIONS (7)
  - Feeling abnormal [Recovered/Resolved]
  - Nervousness [Recovering/Resolving]
  - Condition aggravated [Recovering/Resolving]
  - Vomiting [Unknown]
  - Suicidal ideation [Recovered/Resolved]
  - Depression [Recovered/Resolved]
  - Regurgitation [Unknown]

NARRATIVE: CASE EVENT DATE: 2019
